FAERS Safety Report 11130003 (Version 2)
Quarter: 2015Q2

REPORT INFORMATION
  Report Type: Other
  Country: GB (occurrence: GB)
  Receive Date: 20150521
  Receipt Date: 20150618
  Transmission Date: 20150821
  Serious: Yes (Other)
  Sender: FDA-Public Use
  Company Number: GB-MYLANLABS-2015M1015705

PATIENT

DRUGS (3)
  1. VELCADE [Suspect]
     Active Substance: BORTEZOMIB
     Indication: PLASMA CELL MYELOMA
     Dosage: UNK (DOSAGE FORM: LYOPHILIZED POWDER)
     Route: 065
     Dates: start: 20150417
  2. DEXAMETHASONE. [Suspect]
     Active Substance: DEXAMETHASONE
     Indication: PLASMA CELL MYELOMA
     Dosage: UNK (DOSAGE FORM: UNSPECIFIED)
     Route: 065
     Dates: start: 20150417
  3. THALIDOMIDE [Suspect]
     Active Substance: THALIDOMIDE
     Indication: PLASMA CELL MYELOMA
     Dosage: UNK (DOSAGE FORM: UNSPECIFIED)
     Route: 065
     Dates: start: 20150417

REACTIONS (3)
  - Hepatitis [Unknown]
  - Alanine aminotransferase increased [Recovered/Resolved]
  - Liver function test abnormal [Recovered/Resolved]

NARRATIVE: CASE EVENT DATE: 20150422
